FAERS Safety Report 5491669-1 (Version None)
Quarter: 2007Q4

REPORT INFORMATION
  Report Type: 
  Country: None (occurrence: None)
  Receive Date: 20071022
  Receipt Date: 20071008
  Transmission Date: 20080405
  Serious: Yes (Death)
  Sender: FDA-Public Use
  Company Number: US-JNJFOC-20071001822

PATIENT
  Age: 4 Month
  Sex: Female

DRUGS (2)
  1. PSEUDOEPHEDRINE HCL [Suspect]
     Indication: INJURY
     Dosage: 15 ML BOTTLE
     Route: 048
  2. AMOXICILLIN TRIHYDRATE [Suspect]
     Indication: INJURY
     Dosage: UNKNOWN
     Route: 048

REACTIONS (2)
  - CARDIO-RESPIRATORY ARREST [None]
  - OVERDOSE [None]
